FAERS Safety Report 18094126 (Version 1)
Quarter: 2020Q3

REPORT INFORMATION
  Report Type: Spontaneous
  Country: DE (occurrence: DE)
  Receive Date: 20200730
  Receipt Date: 20200730
  Transmission Date: 20201103
  Serious: Yes (Other)
  Sender: FDA-Public Use
  Company Number: DE-PFIZER INC-2020286801

PATIENT
  Sex: Female

DRUGS (1)
  1. CYTOTEC [Suspect]
     Active Substance: MISOPROSTOL
     Indication: LABOUR INDUCTION
     Dosage: UNK
     Route: 064
     Dates: start: 20190813, end: 20190813

REACTIONS (6)
  - Hypotonia neonatal [Unknown]
  - Neonatal seizure [Unknown]
  - Amniocentesis abnormal [Unknown]
  - Shoulder dystocia [Recovering/Resolving]
  - Foetal exposure during pregnancy [Unknown]
  - Neonatal asphyxia [Unknown]

NARRATIVE: CASE EVENT DATE: 2019
